FAERS Safety Report 21582568 (Version 2)
Quarter: 2022Q4

REPORT INFORMATION
  Report Type: Spontaneous
  Country: US (occurrence: US)
  Receive Date: 20221111
  Receipt Date: 20221201
  Transmission Date: 20230113
  Serious: Yes (Life-Threatening, Hospitalization)
  Sender: FDA-Public Use
  Company Number: US-TEVA-2022-US-2823531

PATIENT
  Age: 17 Year
  Sex: Female

DRUGS (7)
  1. EPINEPHRINE [Suspect]
     Active Substance: EPINEPHRINE
     Indication: Cardiac arrest
     Route: 065
  2. NORTRIPTYLINE [Suspect]
     Active Substance: NORTRIPTYLINE
     Indication: Product used for unknown indication
     Route: 065
  3. NOREPINEPHRINE [Suspect]
     Active Substance: NOREPINEPHRINE
     Indication: Cardiac arrest
     Route: 065
  4. NADOLOL [Suspect]
     Active Substance: NADOLOL
     Indication: Product used for unknown indication
     Route: 065
  5. VASOPRESSIN [Suspect]
     Active Substance: VASOPRESSIN
     Indication: Cardiac arrest
     Route: 065
  6. SALINE [Suspect]
     Active Substance: SODIUM CHLORIDE
     Indication: Cardiac arrest
     Dosage: SODIUM CHLORIDE: 3 %
     Route: 065
  7. INTRALIPID [Suspect]
     Active Substance: EGG PHOSPHOLIPIDS\GLYCERIN\SOYBEAN OIL
     Indication: Cardiac arrest
     Dosage: TWO DOSES 100ML EACH , SOYA OIL EMULSION: 20 %
     Route: 065

REACTIONS (4)
  - Cardiac arrest [Unknown]
  - Encephalopathy [Recovered/Resolved]
  - Overdose [Unknown]
  - Drug ineffective [Unknown]
